FAERS Safety Report 9583004 (Version 2)
Quarter: 2013Q4

REPORT INFORMATION
  Report Type: Spontaneous
  Country: US (occurrence: US)
  Receive Date: 20131002
  Receipt Date: 20131002
  Transmission Date: 20140711
  Serious: No
  Sender: FDA-Public Use
  Company Number: US-AMGEN-USASP2013042414

PATIENT
  Age: 50 Year
  Sex: Female

DRUGS (14)
  1. ENBREL [Suspect]
     Indication: RHEUMATOID ARTHRITIS
     Dosage: 50 MG, QWK
     Route: 065
     Dates: start: 20130611
  2. METHOTREXATE [Suspect]
     Dosage: 2.5 MG, UNK
     Route: 065
  3. PLAQUENIL                          /00072602/ [Concomitant]
     Dosage: 200 MG, UNK
  4. SOMA [Concomitant]
     Dosage: 250 MG, UNK
  5. VIVELLE                            /00045401/ [Concomitant]
     Dosage: 0.1 MG, UNK
  6. FLONASE [Concomitant]
     Dosage: 0.05 %, UNK
  7. CINNAMON                           /01647501/ [Concomitant]
     Dosage: 500 MG, UNK
  8. OMEGA-3                            /01866101/ [Concomitant]
     Dosage: UNK
  9. MULTIVITAMINS, PLAIN [Concomitant]
     Dosage: UNK
  10. CALCIUM + VIT D [Concomitant]
     Dosage: UNK
  11. ASPIRIN [Concomitant]
     Dosage: 81 MG, UNK
  12. FOLIC ACID [Concomitant]
     Dosage: UNK
  13. TURMERIC                           /01079602/ [Concomitant]
     Dosage: UNK
  14. CURCUMIN [Concomitant]
     Dosage: UNK

REACTIONS (3)
  - Increased tendency to bruise [Unknown]
  - Injection site bruising [Unknown]
  - Injection site pain [Not Recovered/Not Resolved]
